FAERS Safety Report 12171307 (Version 1)
Quarter: 2016Q1

REPORT INFORMATION
  Report Type: Spontaneous
  Country: US (occurrence: None)
  Receive Date: 20160310
  Receipt Date: 20160310
  Transmission Date: 20160526
  Serious: Yes (Hospitalization)
  Sender: FDA-Public Use
  Company Number: None

PATIENT
  Age: 66 Year
  Sex: Male
  Weight: 84.1 kg

DRUGS (1)
  1. TERAZOSIN [Suspect]
     Active Substance: TERAZOSIN\TERAZOSIN HYDROCHLORIDE
     Dosage: MG PO
     Route: 048
     Dates: start: 20100909, end: 20150204

REACTIONS (3)
  - Intervertebral disc degeneration [None]
  - Syncope [None]
  - Urinary tract infection [None]

NARRATIVE: CASE EVENT DATE: 20150204
